FAERS Safety Report 7251179-8 (Version None)
Quarter: 2011Q1

REPORT INFORMATION
  Report Type: 
  Country: None (occurrence: None)
  Receive Date: 20110119
  Receipt Date: 20010121
  Transmission Date: 20110831
  Serious: Yes (Other)
  Sender: FDA-Public Use
  Company Number: LEO-2011-00049

PATIENT
  Sex: Female

DRUGS (1)
  1. INNOHEP [Suspect]
     Indication: PHLEBITIS
     Dosage: SUBCUTANEOUS
     Route: 058

REACTIONS (1)
  - THROMBOPHLEBITIS SUPERFICIAL [None]
